FAERS Safety Report 8914834 (Version 1)
Quarter: 2012Q4

REPORT INFORMATION
  Report Type: 
  Country: DE (occurrence: DE)
  Receive Date: 20121119
  Receipt Date: 20121119
  Transmission Date: 20130627
  Serious: Yes (Hospitalization)
  Sender: FDA-Public Use
  Company Number: DE-009507513-1211DEU003348

PATIENT
  Age: 41 Year
  Sex: Female

DRUGS (1)
  1. ORGARAN [Suspect]
     Indication: DEEP VEIN THROMBOSIS

REACTIONS (1)
  - Neurological symptom [Unknown]
